FAERS Safety Report 7419984-2 (Version None)
Quarter: 2011Q2

REPORT INFORMATION
  Report Type: 
  Country: None (occurrence: None)
  Receive Date: 20110418
  Receipt Date: 20101006
  Transmission Date: 20111010
  Serious: Yes (Other)
  Sender: FDA-Public Use
  Company Number: US-BIOGENIDEC-2010BI026327

PATIENT
  Age: 55 Year
  Sex: Female
  Weight: 90 kg

DRUGS (3)
  1. ATENOLOL [Concomitant]
     Indication: HYPERTENSION
  2. TYSABRI [Suspect]
     Indication: MULTIPLE SCLEROSIS
     Route: 042
     Dates: start: 20100528, end: 20100702
  3. LISINOPRIL [Concomitant]
     Indication: HYPERTENSION

REACTIONS (3)
  - CELLULITIS [None]
  - INSOMNIA [None]
  - ANAPHYLACTIC REACTION [None]
